FAERS Safety Report 7040327-0 (Version None)
Quarter: 2010Q4

REPORT INFORMATION
  Report Type: 
  Country: None (occurrence: None)
  Receive Date: 20101012
  Receipt Date: 20101004
  Transmission Date: 20110411
  Serious: No
  Sender: FDA-Public Use
  Company Number: US-PFIZER INC-2010126335

PATIENT
  Sex: Male
  Weight: 85.261 kg

DRUGS (4)
  1. XALATAN [Suspect]
     Indication: GLAUCOMA
     Dosage: UNK, ONE DROP IN EACH EYE AT NIGHT
     Route: 047
     Dates: end: 20090201
  2. XALATAN [Suspect]
     Dosage: UNK, ONE DROP IN EACH EYE AT NIGHT
     Dates: start: 20090201
  3. TRAVATAN [Suspect]
     Indication: GLAUCOMA
     Dosage: UNK, ONE DROP IN EACH EYE AT NIGHT
     Dates: start: 20090201, end: 20090201
  4. TOPROL-XL [Concomitant]
     Indication: HYPERTENSION
     Dosage: UNK

REACTIONS (2)
  - ABDOMINAL DISCOMFORT [None]
  - VISUAL IMPAIRMENT [None]
